FAERS Safety Report 4307225-4 (Version None)
Quarter: 2004Q1

REPORT INFORMATION
  Report Type: 
  Country: None (occurrence: None)
  Receive Date: 20040223
  Receipt Date: 20031031
  Transmission Date: 20041129
  Serious: Yes (Hospitalization)
  Sender: FDA-Public Use
  Company Number: SU-2003-001895

PATIENT
  Age: 88 Year
  Sex: Female
  Weight: 38.5557 kg

DRUGS (3)
  1. BENICAR [Suspect]
     Indication: HYPERTENSION
     Dosage: 20 MG QD PO
     Route: 048
     Dates: start: 20030601, end: 20030820
  2. HYDROCHLOROTHIAZIDE [Suspect]
     Dates: end: 20030820
  3. NORVASC [Concomitant]

REACTIONS (1)
  - RENAL FAILURE ACUTE [None]
